FAERS Safety Report 9350380 (Version 1)
Quarter: 2013Q2

REPORT INFORMATION
  Report Type: Spontaneous
  Country: ES (occurrence: ES)
  Receive Date: 20130617
  Receipt Date: 20130617
  Transmission Date: 20140414
  Serious: Yes (Other)
  Sender: FDA-Public Use
  Company Number: ES-ROCHE-1235537

PATIENT
  Age: 8 Month
  Sex: Female

DRUGS (7)
  1. GANCICLOVIR [Suspect]
     Indication: CYTOMEGALOVIRUS INFECTION
     Route: 042
  2. VALGANCICLOVIR HYDROCHLORIDE [Suspect]
     Indication: CYTOMEGALOVIRUS INFECTION
     Route: 065
  3. VALGANCICLOVIR HYDROCHLORIDE [Suspect]
     Route: 065
  4. MELPHALAN [Concomitant]
     Indication: CYTOMEGALOVIRUS INFECTION
  5. FLUDARABINE [Concomitant]
     Indication: CYTOMEGALOVIRUS INFECTION
  6. CYCLOSPORINE [Concomitant]
     Indication: CYTOMEGALOVIRUS INFECTION
  7. ANTITHYMOCYTE GLOBULIN [Concomitant]
     Indication: CYTOMEGALOVIRUS INFECTION

REACTIONS (2)
  - Drug resistance [Recovering/Resolving]
  - Diarrhoea [Unknown]
